FAERS Safety Report 25758551 (Version 1)
Quarter: 2025Q3

REPORT INFORMATION
  Report Type: Spontaneous
  Country: US (occurrence: US)
  Receive Date: 20250904
  Receipt Date: 20250904
  Transmission Date: 20251020
  Serious: No
  Sender: BOSTON SCIENTIFIC
  Company Number: US-BSC-2024000089

PATIENT

DRUGS (1)
  1. VARITHENA [Suspect]
     Active Substance: POLIDOCANOL
     Indication: Product used for unknown indication
     Dates: start: 202408

REACTIONS (2)
  - Stomatitis [Unknown]
  - Dry mouth [Unknown]

NARRATIVE: CASE EVENT DATE: 20240101
